FAERS Safety Report 7377256-9 (Version None)
Quarter: 2011Q1

REPORT INFORMATION
  Report Type: 
  Country: None (occurrence: None)
  Receive Date: 20110315
  Receipt Date: 20110302
  Transmission Date: 20110831
  Serious: Yes (Hospitalization, Other)
  Sender: FDA-Public Use
  Company Number: ACO_21991_2011

PATIENT
  Age: 59 Year
  Sex: Female

DRUGS (11)
  1. AVONEX [Concomitant]
  2. ALEVE [Concomitant]
  3. ATENOLOL AND CHLORTHALIDONE [Concomitant]
  4. LIPITOR [Concomitant]
  5. AZATHIOPRINE [Concomitant]
  6. NEFAZODONE HCL [Concomitant]
  7. ATENOLOL [Concomitant]
  8. MULTIVITAMINS (ASCORBIC ACID, ERGOCALCIFEROL, FOLIC ACID, NICOTINAMIDE [Concomitant]
  9. DETROL LA [Concomitant]
  10. MELOXICAM [Concomitant]
  11. AMPYRA [Suspect]
     Indication: PRODUCT USED FOR UNKNOWN INDICATION
     Dosage: 10MG,
     Dates: start: 20100811, end: 20110210

REACTIONS (7)
  - OVERDOSE [None]
  - IRRITABILITY [None]
  - GAIT DISTURBANCE [None]
  - AGGRESSION [None]
  - GRAND MAL CONVULSION [None]
  - UNRESPONSIVE TO STIMULI [None]
  - NERVOUS SYSTEM DISORDER [None]
